FAERS Safety Report 4429740-5 (Version None)
Quarter: 2004Q3

REPORT INFORMATION
  Report Type: 
  Country: None (occurrence: None)
  Receive Date: 20040820
  Receipt Date: 20040602
  Transmission Date: 20050211
  Serious: Yes (Other)
  Sender: FDA-Public Use
  Company Number: JP-JNJFOC-20031205184

PATIENT
  Age: 62 Year
  Sex: Male

DRUGS (13)
  1. REMICADE [Suspect]
     Route: 042
  2. REMICADE [Suspect]
     Route: 042
  3. REMICADE [Suspect]
     Route: 042
  4. REMICADE [Suspect]
     Route: 042
  5. REMICADE [Suspect]
     Indication: RHEUMATOID ARTHRITIS
     Route: 042
  6. DICLOFENAC SODIUM [Concomitant]
     Route: 065
  7. TEPRENONE [Concomitant]
     Route: 065
  8. LANSOPRAZOLE [Concomitant]
     Route: 065
  9. PREDNISOLONE [Concomitant]
     Route: 065
  10. KETOPROFEN [Concomitant]
     Route: 065
  11. MIZORIBINE [Concomitant]
     Route: 065
  12. METHOTREXATE [Concomitant]
     Route: 065
  13. TERBINAFINE HCL [Concomitant]

REACTIONS (2)
  - HAEMATURIA [None]
  - TINEA BLANCA [None]
